FAERS Safety Report 10097114 (Version 1)
Quarter: 2014Q2

REPORT INFORMATION
  Report Type: Spontaneous
  Country: US (occurrence: US)
  Receive Date: 20140422
  Receipt Date: 20140422
  Transmission Date: 20141212
  Serious: No
  Sender: FDA-Public Use
  Company Number: US-GILEAD-2014-0099976

PATIENT
  Age: 59 Year
  Sex: Female
  Weight: 90.25 kg

DRUGS (2)
  1. SOVALDI [Suspect]
     Indication: HEPATITIS C
     Dosage: 400 MG, UNK
     Route: 065
     Dates: start: 20140219
  2. RIBAVIRIN [Concomitant]

REACTIONS (2)
  - Emotional disorder [Recovered/Resolved]
  - Irritability [Recovered/Resolved]
